FAERS Safety Report 9096376 (Version 1)
Quarter: 2013Q1

REPORT INFORMATION
  Report Type: Spontaneous
  Country: US (occurrence: None)
  Receive Date: 20130219
  Receipt Date: 20130219
  Transmission Date: 20140127
  Serious: Yes (Other)
  Sender: FDA-Public Use
  Company Number: None

PATIENT
  Sex: Male
  Weight: 83.01 kg

DRUGS (5)
  1. LANSOPRAZOLE 30MG SANDOZ [Suspect]
     Route: 048
     Dates: start: 200907, end: 200909
  2. LANSOPRAZOLE 30MG SANDOZ [Suspect]
     Route: 048
     Dates: start: 200907, end: 200909
  3. LANSOPRAZOLE 30MG SANDOZ [Suspect]
     Route: 048
     Dates: start: 200907, end: 200909
  4. LANSOPRAZOLE 30MG SANDOZ [Suspect]
     Route: 048
     Dates: start: 200907, end: 200909
  5. OMEPRAZOLE [Concomitant]

REACTIONS (2)
  - Retching [None]
  - Nausea [None]
